FAERS Safety Report 23932182 (Version 1)
Quarter: 2024Q2

REPORT INFORMATION
  Report Type: Spontaneous
  Country: US (occurrence: None)
  Receive Date: 20240531
  Receipt Date: 20240531
  Transmission Date: 20240715
  Serious: Yes (Other)
  Sender: FDA-Public Use
  Company Number: None

PATIENT
  Age: 42 Year
  Sex: Female

DRUGS (1)
  1. BOTOX [Suspect]
     Active Substance: ONABOTULINUMTOXINA
     Indication: Skin wrinkling
     Dates: start: 20240201, end: 20240201

REACTIONS (6)
  - Injection site swelling [None]
  - Urticaria [None]
  - Hypophagia [None]
  - Lip disorder [None]
  - Eye movement disorder [None]
  - Hypersensitivity [None]

NARRATIVE: CASE EVENT DATE: 20240201
